FAERS Safety Report 6291257-3 (Version None)
Quarter: 2009Q3

REPORT INFORMATION
  Report Type: 
  Country: None (occurrence: None)
  Receive Date: 20090727
  Receipt Date: 20090727
  Transmission Date: 20100115
  Serious: No
  Sender: FDA-Public Use
  Company Number: None

PATIENT
  Age: 73 Year
  Sex: Female
  Weight: 72.5755 kg

DRUGS (1)
  1. MOVIPREP [Suspect]
     Indication: BOWEL PREPARATION
     Dosage: 1 LITERS TWICE PO
     Route: 048
     Dates: start: 20090712, end: 20090713

REACTIONS (1)
  - MUSCLE SPASMS [None]
